FAERS Safety Report 4403950-5 (Version None)
Quarter: 2004Q3

REPORT INFORMATION
  Report Type: 
  Country: None (occurrence: None)
  Receive Date: 20040719
  Receipt Date: 20040706
  Transmission Date: 20050211
  Serious: Yes (Death)
  Sender: FDA-Public Use
  Company Number: 2004-BP-04464BR

PATIENT
  Age: 68 Year
  Sex: Male

DRUGS (5)
  1. SPIRIVA [Suspect]
     Indication: CHRONIC OBSTRUCTIVE AIRWAYS DISEASE
     Dosage: (18 MCG, 1 KAI OAD) IH
     Route: 055
     Dates: start: 20040519, end: 20040519
  2. FORASEO (FORASEO) (NR) [Concomitant]
  3. MIFLONIDE (BUDESONIDE) (NR) [Concomitant]
  4. PREDSIN (PREDNISOLONE) (NR) [Concomitant]
  5. DUOVENT (DUOVENT) (NR) [Concomitant]

REACTIONS (1)
  - MALAISE [None]
